FAERS Safety Report 8846915 (Version 1)
Quarter: 2012Q4

REPORT INFORMATION
  Report Type: Report from Study
  Country: US (occurrence: US)
  Receive Date: 20121018
  Receipt Date: 20121018
  Transmission Date: 20130627
  Serious: Yes (Disabling, Other)
  Sender: FDA-Public Use
  Company Number: US-US-EMD SERONO, INC.-7167729

PATIENT
  Sex: Male

DRUGS (3)
  1. REBIF [Suspect]
     Indication: MULTIPLE SCLEROSIS
     Route: 058
     Dates: start: 20050412
  2. LYRICA [Concomitant]
     Indication: HYPOAESTHESIA
     Dosage: four or five years
  3. LYRICA [Concomitant]
     Indication: PAIN IN EXTREMITY

REACTIONS (3)
  - Bipolar disorder [Recovering/Resolving]
  - Multiple sclerosis relapse [Not Recovered/Not Resolved]
  - Injection site erythema [Not Recovered/Not Resolved]
